FAERS Safety Report 7700190-9 (Version None)
Quarter: 2011Q3

REPORT INFORMATION
  Report Type: 
  Country: None (occurrence: None)
  Receive Date: 20110822
  Receipt Date: 20110812
  Transmission Date: 20111222
  Serious: Yes (Hospitalization)
  Sender: FDA-Public Use
  Company Number: US-ALEXION-A201101133

PATIENT
  Sex: Male

DRUGS (1)
  1. SOLIRIS [Suspect]
     Indication: PAROXYSMAL NOCTURNAL HAEMOGLOBINURIA
     Dosage: 1200 MG, UNK
     Route: 042
     Dates: start: 20090401

REACTIONS (5)
  - MUSCLE HAEMORRHAGE [None]
  - HAEMORRHAGIC STROKE [None]
  - ATELECTASIS [None]
  - SPLENIC HAEMORRHAGE [None]
  - WHITE BLOOD CELL COUNT INCREASED [None]
